FAERS Safety Report 25833385 (Version 1)
Quarter: 2025Q3

REPORT INFORMATION
  Report Type: Spontaneous
  Country: EU (occurrence: EU)
  Receive Date: 20250922
  Receipt Date: 20250922
  Transmission Date: 20251021
  Serious: Yes (Hospitalization, Other)
  Sender: NOVARTIS
  Company Number: EU-002147023-NVSC2025AT133762

PATIENT
  Age: 53 Year
  Sex: Male

DRUGS (9)
  1. ILARIS [Suspect]
     Active Substance: CANAKINUMAB
     Indication: Rheumatoid arthritis
     Route: 058
     Dates: start: 20250729
  2. ILARIS [Suspect]
     Active Substance: CANAKINUMAB
     Indication: Gout
  3. VITAMIN D [Concomitant]
     Active Substance: VITAMIN D NOS
     Indication: Product used for unknown indication
     Route: 065
  4. CORTISONE [Concomitant]
     Active Substance: CORTISONE
     Indication: Product used for unknown indication
     Route: 065
  5. METHYLPREDNISOLONE [Concomitant]
     Active Substance: METHYLPREDNISOLONE
     Indication: Product used for unknown indication
     Route: 065
  6. ACETAMINOPHEN [Concomitant]
     Active Substance: ACETAMINOPHEN
     Indication: Product used for unknown indication
     Route: 065
  7. Novalgin [Concomitant]
     Indication: Product used for unknown indication
     Route: 065
  8. ELIQUIS [Concomitant]
     Active Substance: APIXABAN
     Indication: Product used for unknown indication
     Dosage: 2.5 MG, BID
     Route: 065
  9. VALSARTAN [Concomitant]
     Active Substance: VALSARTAN
     Indication: Product used for unknown indication
     Route: 065
     Dates: start: 2021

REACTIONS (28)
  - Arthritis [Unknown]
  - Peripheral swelling [Unknown]
  - Erysipelas [Unknown]
  - Erythema [Unknown]
  - Haematochezia [Not Recovered/Not Resolved]
  - Pulmonary oedema [Unknown]
  - Skin exfoliation [Unknown]
  - Liver function test increased [Recovered/Resolved]
  - Gingival bleeding [Unknown]
  - Ocular hyperaemia [Unknown]
  - Yellow skin [Unknown]
  - Dry mouth [Recovering/Resolving]
  - Wheezing [Unknown]
  - Weight decreased [Recovered/Resolved]
  - Performance status decreased [Recovering/Resolving]
  - Influenza like illness [Recovering/Resolving]
  - Cough [Recovered/Resolved]
  - Productive cough [Recovering/Resolving]
  - Pyrexia [Recovered/Resolved]
  - Pelvic pain [Recovered/Resolved]
  - Groin pain [Recovered/Resolved]
  - Weight increased [Unknown]
  - Pain in extremity [Not Recovered/Not Resolved]
  - Faeces discoloured [Not Recovered/Not Resolved]
  - Gastrointestinal pain [Unknown]
  - Vomiting [Recovered/Resolved]
  - Face oedema [Unknown]
  - Bacterial infection [Unknown]

NARRATIVE: CASE EVENT DATE: 20250101
